FAERS Safety Report 5025664-3 (Version None)
Quarter: 2006Q2

REPORT INFORMATION
  Report Type: 
  Country: None (occurrence: None)
  Receive Date: 20060614
  Receipt Date: 20060602
  Transmission Date: 20061013
  Serious: Yes (Hospitalization)
  Sender: FDA-Public Use
  Company Number: PHRM2006FR01706

PATIENT
  Age: 39 Year
  Sex: Female

DRUGS (2)
  1. CORTANCYL [Concomitant]
     Dosage: 10 MG DAILY
     Route: 048
  2. NEORAL [Suspect]
     Indication: RENAL TRANSPLANT
     Dosage: 100 MG, BID
     Route: 048

REACTIONS (10)
  - BLOOD CREATININE INCREASED [None]
  - BLOOD UREA INCREASED [None]
  - BLOOD URIC ACID INCREASED [None]
  - GLOMERULONEPHRITIS MINIMAL LESION [None]
  - HYPERPHOSPHATAEMIA [None]
  - HYPERTENSION [None]
  - MICROCYTIC ANAEMIA [None]
  - PROTEINURIA [None]
  - RENAL FAILURE [None]
  - TUBULOINTERSTITIAL NEPHRITIS [None]
